FAERS Safety Report 5525271-X (Version None)
Quarter: 2007Q4

REPORT INFORMATION
  Report Type: 
  Country: None (occurrence: None)
  Receive Date: 20071126
  Receipt Date: 20071121
  Transmission Date: 20080405
  Serious: Yes (Hospitalization)
  Sender: FDA-Public Use
  Company Number: FR-BRISTOL-MYERS SQUIBB COMPANY-13991120

PATIENT
  Age: 65 Year
  Sex: Male

DRUGS (12)
  1. ELISOR TABS 20 MG [Suspect]
     Dates: end: 20061128
  2. CRESTOR [Suspect]
     Indication: DYSLIPIDAEMIA
     Dosage: CRESTOR 10 MG  FROM 28NOV06-26JUN2007, DOSE INCREASED TO 20MG FROM 26JUN07-11OCT07.
     Dates: start: 20061128, end: 20071011
  3. KIVEXA [Concomitant]
  4. TELZIR [Concomitant]
  5. NORVIR [Concomitant]
  6. LASIX [Concomitant]
  7. XATRAL [Concomitant]
  8. PLAVIX [Concomitant]
  9. MOPRAL [Concomitant]
  10. SECTRAL [Concomitant]
  11. TANAKAN [Concomitant]
  12. LEXOMIL [Concomitant]

REACTIONS (3)
  - CEREBELLAR ATAXIA [None]
  - DISEASE PROGRESSION [None]
  - NEURALGIA [None]
